FAERS Safety Report 6970907-X (Version None)
Quarter: 2010Q3

REPORT INFORMATION
  Report Type: 
  Country: None (occurrence: None)
  Receive Date: 20100908
  Receipt Date: 20100824
  Transmission Date: 20110219
  Serious: Yes (Hospitalization)
  Sender: FDA-Public Use
  Company Number: PHHY2010MX56826

PATIENT
  Age: 58 Year
  Sex: Female

DRUGS (1)
  1. ZELMAC [Suspect]
     Indication: GASTRITIS
     Dosage: 2 TABLETS (6 MG) PER DAY
     Route: 048
     Dates: start: 20080101

REACTIONS (4)
  - ABDOMINAL DISTENSION [None]
  - ABDOMINAL PAIN UPPER [None]
  - GALLBLADDER DISORDER [None]
  - SURGERY [None]
